FAERS Safety Report 11032633 (Version 1)
Quarter: 2015Q2

REPORT INFORMATION
  Report Type: Spontaneous
  Country: US (occurrence: US)
  Receive Date: 20150415
  Receipt Date: 20150415
  Transmission Date: 20150821
  Serious: No
  Sender: FDA-Public Use
  Company Number: US-009507513-1504USA005119

PATIENT
  Sex: Male

DRUGS (2)
  1. JANUVIA [Suspect]
     Active Substance: SITAGLIPTIN PHOSPHATE
     Dosage: 50 MG, QD
     Route: 048
  2. VICTOZA [Interacting]
     Active Substance: LIRAGLUTIDE
     Dosage: 1.2 MG, QD
     Route: 048

REACTIONS (5)
  - Glycosylated haemoglobin decreased [Unknown]
  - Blood cholesterol increased [Unknown]
  - Hypoglycaemia [Recovered/Resolved]
  - Renal disorder [Unknown]
  - Renal function test abnormal [Unknown]

NARRATIVE: CASE EVENT DATE: 201503
